FAERS Safety Report 7003813-5 (Version None)
Quarter: 2010Q3

REPORT INFORMATION
  Report Type: 
  Country: None (occurrence: None)
  Receive Date: 20100920
  Receipt Date: 20091201
  Transmission Date: 20110219
  Serious: Yes (Other)
  Sender: FDA-Public Use
  Company Number: US-WYE-H12435209

PATIENT
  Sex: Male

DRUGS (6)
  1. PROTONIX [Suspect]
     Indication: GASTRIC DISORDER
     Dosage: UNKNOWN
  2. METHOTREXATE [Concomitant]
     Dosage: UNKNOWN
     Dates: start: 20090101
  3. ROSUVASTATIN [Concomitant]
     Dosage: UNKNOWN
  4. NORCO [Concomitant]
     Dosage: UNKNOWN
  5. ASPIRIN [Suspect]
     Indication: STENT PLACEMENT
     Dosage: UNKNOWN
     Dates: start: 20090701
  6. PLAVIX [Suspect]
     Indication: STENT PLACEMENT
     Route: 048
     Dates: start: 20090713

REACTIONS (4)
  - ABDOMINAL PAIN UPPER [None]
  - CONDITION AGGRAVATED [None]
  - DYSPEPSIA [None]
  - NAUSEA [None]
